FAERS Safety Report 6014999-3 (Version None)
Quarter: 2008Q4

REPORT INFORMATION
  Report Type: 
  Country: None (occurrence: None)
  Receive Date: 20081219
  Receipt Date: 20081212
  Transmission Date: 20090506
  Serious: Yes (Other)
  Sender: FDA-Public Use
  Company Number: JP-GILEAD-E2B_00000244

PATIENT
  Age: 41 Year
  Sex: Female

DRUGS (2)
  1. HEPSERA [Suspect]
     Indication: DRUG USE FOR UNKNOWN INDICATION
     Route: 065
     Dates: start: 20081203, end: 20081203
  2. CHINESE MEDICINE [Concomitant]
     Route: 048

REACTIONS (12)
  - ACCIDENTAL EXPOSURE [None]
  - DIZZINESS [None]
  - DRUG HYPERSENSITIVITY [None]
  - DRY MOUTH [None]
  - DRY THROAT [None]
  - ERYTHEMA [None]
  - FEELING HOT [None]
  - FLUSHING [None]
  - HEAD DISCOMFORT [None]
  - HEADACHE [None]
  - THIRST [None]
  - VISUAL ACUITY REDUCED [None]
